FAERS Safety Report 9895352 (Version 1)
Quarter: 2014Q1

REPORT INFORMATION
  Report Type: Spontaneous
  Country: US (occurrence: US)
  Receive Date: 20140213
  Receipt Date: 20140213
  Transmission Date: 20141002
  Serious: No
  Sender: FDA-Public Use
  Company Number: US-BRISTOL-MYERS SQUIBB COMPANY-18964114

PATIENT
  Age: 55 Year
  Sex: Male
  Weight: 74.83 kg

DRUGS (7)
  1. ABATACEPT SUBQ INJECTION 125MG/ML [Suspect]
     Indication: RHEUMATOID ARTHRITIS
     Dosage: 1DF:125 UNITNOS.
     Route: 058
     Dates: start: 2013
  2. MELOXICAM [Concomitant]
  3. LIPITOR [Concomitant]
  4. FOLIC ACID [Concomitant]
  5. PREDNISONE [Concomitant]
  6. FLEXERIL [Concomitant]
  7. LORTAB [Concomitant]

REACTIONS (1)
  - Rash pruritic [Recovering/Resolving]
